FAERS Safety Report 6520938-9 (Version None)
Quarter: 2009Q4

REPORT INFORMATION
  Report Type: 
  Country: None (occurrence: None)
  Receive Date: 20091229
  Receipt Date: 20091216
  Transmission Date: 20100525
  Serious: Yes (Hospitalization)
  Sender: FDA-Public Use
  Company Number: FR-AMGEN-US377494

PATIENT
  Age: 47 Year
  Sex: Female

DRUGS (6)
  1. ENBREL [Suspect]
     Indication: ANKYLOSING SPONDYLITIS
     Route: 058
     Dates: start: 20080710, end: 20080724
  2. REMICADE [Suspect]
     Indication: ANKYLOSING SPONDYLITIS
     Dosage: 275 MG EVERY 1 CYC
     Route: 042
     Dates: start: 20080810, end: 20081121
  3. LYRICA [Concomitant]
     Dosage: 75 MG STRENGTH; DOSE UNKNOWN
     Route: 048
  4. TOPALGIC [Concomitant]
     Dosage: 200 MG STRENGTH; DOSE UNKNOWN
     Route: 048
  5. NEXIUM [Concomitant]
     Dosage: 20 MG STRENGTH; DOSE UNKNOWN
     Route: 048
  6. HUMIRA [Concomitant]
     Route: 065
     Dates: start: 20080801

REACTIONS (2)
  - ACNE CYSTIC [None]
  - CONDITION AGGRAVATED [None]
